FAERS Safety Report 8326226-2 (Version None)
Quarter: 2012Q2

REPORT INFORMATION
  Report Type: 
  Country: None (occurrence: None)
  Receive Date: 20120501
  Receipt Date: 20120424
  Transmission Date: 20120825
  Serious: Yes (Other)
  Sender: FDA-Public Use
  Company Number: US-CELGENEUS-163-21880-12042786

PATIENT
  Sex: Male

DRUGS (13)
  1. FUROSEMIDE [Concomitant]
     Dosage: 40 MILLIGRAM
     Route: 065
  2. ZOLPIDEM [Concomitant]
     Dosage: 10 MILLIGRAM
     Route: 065
  3. SERTRALINE HYDROCHLORIDE [Concomitant]
     Dosage: 25 MILLIGRAM
     Route: 065
  4. REVLIMID [Suspect]
     Indication: MULTIPLE MYELOMA
     Dosage: 10 MILLIGRAM
     Route: 048
     Dates: start: 20111017, end: 20120424
  5. PROMETHAZINE W/ CODEINE [Concomitant]
     Dosage: 10 MILLIGRAM
     Route: 048
  6. OXYCODONE HCL [Concomitant]
     Dosage: 5 MILLIGRAM
     Route: 065
  7. ANDROGEL [Concomitant]
     Route: 065
  8. FRAGMIN [Concomitant]
     Dosage: 7500 MILLIGRAM
     Route: 065
  9. ASPIRIN [Concomitant]
     Route: 065
  10. ALPRAZOLAM [Concomitant]
     Dosage: .5 MILLIGRAM
     Route: 065
  11. DEXAMETHASONE [Concomitant]
     Dosage: 2 MILLIGRAM
     Route: 065
  12. ZEMPLAR [Concomitant]
     Dosage: 1 MICROGRAM
     Route: 048
  13. PROCHLORPERAZINE [Concomitant]
     Dosage: 10 MILLIGRAM
     Route: 048

REACTIONS (3)
  - THROMBOSIS [None]
  - PLATELET COUNT DECREASED [None]
  - MACULAR DEGENERATION [None]
